FAERS Safety Report 9359642 (Version 1)
Quarter: 2013Q2

REPORT INFORMATION
  Report Type: Spontaneous
  Country: US (occurrence: US)
  Receive Date: 20130620
  Receipt Date: 20130620
  Transmission Date: 20140414
  Serious: No
  Sender: FDA-Public Use
  Company Number: US-US-EMD SERONO, INC.-7055608

PATIENT
  Sex: Female

DRUGS (2)
  1. REBIF [Suspect]
     Indication: PRODUCT USED FOR UNKNOWN INDICATION
     Route: 058
     Dates: start: 20110221, end: 201103
  2. REBIF [Suspect]
     Route: 058
     Dates: start: 201103, end: 20130201

REACTIONS (5)
  - Feeling abnormal [Unknown]
  - Menorrhagia [Recovering/Resolving]
  - Hair growth abnormal [Recovered/Resolved]
  - Nail growth abnormal [Recovered/Resolved]
  - Injection site erythema [Recovering/Resolving]
